FAERS Safety Report 20617643 (Version 1)
Quarter: 2022Q1

REPORT INFORMATION
  Report Type: Report from Study
  Country: BR (occurrence: BR)
  Receive Date: 20220321
  Receipt Date: 20220321
  Transmission Date: 20220423
  Serious: Yes (Disabling)
  Sender: FDA-Public Use
  Company Number: BR-ABBVIE-21K-020-4094985-00

PATIENT
  Age: 64 Year
  Sex: Female
  Weight: 72 kg

DRUGS (3)
  1. RINVOQ [Suspect]
     Active Substance: UPADACITINIB
     Indication: Rheumatoid arthritis
     Dosage: AT THE LUNCH
     Route: 048
     Dates: start: 20201217
  2. RINVOQ [Suspect]
     Active Substance: UPADACITINIB
     Route: 048
  3. LOSARTAN [Concomitant]
     Active Substance: LOSARTAN
     Indication: Hypertension

REACTIONS (21)
  - Fall [Recovering/Resolving]
  - Fall [Recovered/Resolved]
  - Fall [Recovered/Resolved]
  - Contusion [Recovering/Resolving]
  - Joint swelling [Recovering/Resolving]
  - Ulcer [Recovering/Resolving]
  - Pain [Recovered/Resolved]
  - Anaemia [Recovering/Resolving]
  - Pallor [Recovering/Resolving]
  - Eye colour change [Recovering/Resolving]
  - Dizziness [Recovering/Resolving]
  - Diarrhoea [Recovering/Resolving]
  - Feeling cold [Recovering/Resolving]
  - Pyrexia [Recovering/Resolving]
  - Pain [Recovering/Resolving]
  - Headache [Recovering/Resolving]
  - Asthenia [Recovering/Resolving]
  - Hypophagia [Recovered/Resolved]
  - Upper limb fracture [Recovering/Resolving]
  - Joint range of motion decreased [Not Recovered/Not Resolved]
  - Joint dislocation [Recovering/Resolving]

NARRATIVE: CASE EVENT DATE: 20210701
